FAERS Safety Report 4593951-9 (Version None)
Quarter: 2005Q1

REPORT INFORMATION
  Report Type: 
  Country: None (occurrence: None)
  Receive Date: 20050222
  Receipt Date: 20050204
  Transmission Date: 20050727
  Serious: Yes (Hospitalization, Other)
  Sender: FDA-Public Use
  Company Number: 2013342-2004-001

PATIENT
  Age: 74 Year
  Sex: Male

DRUGS (5)
  1. LEUKOTRAP RC-PL SYSTEM [Suspect]
  2. LEUKOTRAP RC-PL SYSTEM [Suspect]
  3. LEUKOTRAP RC-PL SYSTEM [Suspect]
  4. LEUKOTRAP RC-PL SYSTEM [Suspect]
  5. LEUKOTRAP RC-PL SYSTEM [Suspect]

REACTIONS (2)
  - HYPOTENSION [None]
  - MALAISE [None]
